FAERS Safety Report 15332309 (Version 1)
Quarter: 2018Q3

REPORT INFORMATION
  Report Type: Spontaneous
  Country: CH (occurrence: CH)
  Receive Date: 20180829
  Receipt Date: 20180829
  Transmission Date: 20181010
  Serious: Yes (Hospitalization)
  Sender: FDA-Public Use
  Company Number: -ASTRAZENECA-2018SF06928

PATIENT
  Age: 82 Year
  Sex: Female

DRUGS (10)
  1. FORTIMEL JUCY [Concomitant]
  2. VITAMIN B12 AMINO [Concomitant]
  3. XARELTO [Concomitant]
     Active Substance: RIVAROXABAN
     Route: 048
  4. ATACAND PLUS [Suspect]
     Active Substance: CANDESARTAN CILEXETIL\HYDROCHLOROTHIAZIDE
     Route: 048
     Dates: end: 201807
  5. ACIDUM FOLICUM STREULI [Concomitant]
     Active Substance: FOLIC ACID
     Route: 048
  6. OESTRO?GYNAEDRON [Concomitant]
  7. VAGIFEM [Concomitant]
     Active Substance: ESTRADIOL
     Route: 067
  8. VITAMIN D3 WILD [Concomitant]
     Active Substance: CHOLECALCIFEROL
     Dosage: 500 IE/GTT
     Route: 048
  9. ESOMEPRAZOLE [Suspect]
     Active Substance: ESOMEPRAZOLE
     Route: 048
  10. AMLODIPIN PFIZER [Concomitant]
     Active Substance: AMLODIPINE BESYLATE
     Route: 048

REACTIONS (2)
  - Hyponatraemia [Recovering/Resolving]
  - Hypovolaemia [Recovering/Resolving]

NARRATIVE: CASE EVENT DATE: 20180722
